FAERS Safety Report 12890376 (Version 4)
Quarter: 2016Q4

REPORT INFORMATION
  Report Type: Spontaneous
  Country: US (occurrence: US)
  Receive Date: 20161027
  Receipt Date: 20161219
  Transmission Date: 20170207
  Serious: Yes (Hospitalization)
  Sender: FDA-Public Use
  Company Number: US-ACTELION-A-US2016-144373

PATIENT
  Age: 65 Year
  Sex: Male

DRUGS (2)
  1. VELETRI [Suspect]
     Active Substance: EPOPROSTENOL
     Indication: PULMONARY ARTERIAL HYPERTENSION
     Dosage: 101 NG/KG, PER MIN
     Route: 042
     Dates: start: 20141107
  2. ADCIRCA [Concomitant]
     Active Substance: TADALAFIL

REACTIONS (4)
  - Device occlusion [Unknown]
  - Complication associated with device [Unknown]
  - Device alarm issue [Unknown]
  - Catheter management [Unknown]

NARRATIVE: CASE EVENT DATE: 20161015
